FAERS Safety Report 6377304-9 (Version None)
Quarter: 2009Q3

REPORT INFORMATION
  Report Type: 
  Country: None (occurrence: None)
  Receive Date: 20090925
  Receipt Date: 20090914
  Transmission Date: 20100115
  Serious: Yes (Hospitalization)
  Sender: FDA-Public Use
  Company Number: PK-WATSON-2009-07537

PATIENT
  Age: 21 Year
  Sex: Female

DRUGS (1)
  1. HEPARIN SODIUM [Suspect]
     Indication: DEEP VEIN THROMBOSIS
     Dosage: 5000 IU, SINGLE
     Route: 058

REACTIONS (4)
  - DRUG ERUPTION [None]
  - RASH ERYTHEMATOUS [None]
  - RASH PUSTULAR [None]
  - SKIN EXFOLIATION [None]
